FAERS Safety Report 14292847 (Version 22)
Quarter: 2024Q3

REPORT INFORMATION
  Report Type: Spontaneous
  Country: LT (occurrence: LT)
  Receive Date: 20171215
  Receipt Date: 20240812
  Transmission Date: 20241016
  Serious: Yes (Life-Threatening, Other)
  Sender: MYLAN
  Company Number: LT-PFIZER INC-2017532771

PATIENT
  Age: 53 Year
  Sex: Female

DRUGS (15)
  1. ALPRAZOLAM [Interacting]
     Active Substance: ALPRAZOLAM
     Indication: Anxiety disorder
     Dosage: 0.5 MG, DAILY (LONG-TERM USE)
     Route: 048
  2. FENTANYL [Interacting]
     Active Substance: FENTANYL\FENTANYL CITRATE
     Indication: Pain management
     Dosage: (75 UG/H, LONG-TERM USE)
     Route: 061
  3. PEMETREXED [Interacting]
     Active Substance: PEMETREXED
     Indication: Pleural mesothelioma
     Dosage: UNK (SECOND CYCLE SECOND)
     Route: 042
     Dates: start: 201611, end: 2016
  4. CISPLATIN [Interacting]
     Active Substance: CISPLATIN
     Indication: Pleural mesothelioma
     Dosage: 150 MG, DAILY II CYCLE (AFTER 6 PREVIOUS CYCLES OF CISPLATIN AND PEMETREXED)
     Route: 042
     Dates: start: 201611, end: 2016
  5. CYANOCOBALAMIN [Interacting]
     Active Substance: CYANOCOBALAMIN
     Indication: Premedication
     Dosage: 1000 MG, UNK
     Route: 042
  6. FOLIC ACID [Interacting]
     Active Substance: FOLIC ACID
     Indication: Premedication
     Dosage: 1000 MG, DAILY
     Route: 042
  7. DEXAMETHASONE [Interacting]
     Active Substance: DEXAMETHASONE
     Indication: Premedication
     Dosage: 4 MG (8 TABLETS), DAILY
     Route: 048
     Dates: start: 2016
  8. MANNITOL [Interacting]
     Active Substance: MANNITOL
     Indication: Toxicity to various agents
     Dosage: 1000 ML (10 PROC.)
     Route: 042
     Dates: start: 2016
  9. ONDANSETRON [Interacting]
     Active Substance: ONDANSETRON
     Indication: Prophylaxis of nausea and vomiting
     Dosage: 8 MG, DAILY
     Route: 048
     Dates: start: 2016
  10. TRAMADOL [Interacting]
     Active Substance: TRAMADOL\TRAMADOL HYDROCHLORIDE
     Indication: Pain management
     Dosage: 100 MG, DAILY (LONG-TERM USE)
     Route: 048
  11. METOPROLOL SUCCINATE [Interacting]
     Active Substance: METOPROLOL SUCCINATE
     Indication: Hypertension
     Dosage: 47.5 MG, DAILY (LONG-TERM USE)
     Route: 048
  12. TIANEPTINE [Interacting]
     Active Substance: TIANEPTINE
     Indication: Depression
     Dosage: 12.5 MG, DAILY (LONG-TERM USE)
     Route: 048
  13. TIANEPTINE [Interacting]
     Active Substance: TIANEPTINE
     Indication: Pain management
  14. APREPITANT [Interacting]
     Active Substance: APREPITANT
     Indication: Prophylaxis of nausea and vomiting
     Dosage: 125 MG, DAILY
     Route: 048
     Dates: start: 2016
  15. SHARK CARTILAGE\SHARK, UNSPECIFIED [Interacting]
     Active Substance: SHARK CARTILAGE\SHARK, UNSPECIFIED
     Indication: Product used for unknown indication
     Dosage: 7.5 ML, UNK
     Route: 048
     Dates: start: 2016

REACTIONS (3)
  - Cardio-respiratory arrest [Recovered/Resolved]
  - Circulatory collapse [Recovered/Resolved]
  - Drug interaction [Recovered/Resolved]
